FAERS Safety Report 8433769-X (Version None)
Quarter: 2012Q2

REPORT INFORMATION
  Report Type: 
  Country: None (occurrence: None)
  Receive Date: 20120613
  Receipt Date: 20120604
  Transmission Date: 20120825
  Serious: Yes (Other)
  Sender: FDA-Public Use
  Company Number: TW-PFIZER INC-2012134861

PATIENT
  Age: 67 Year
  Sex: Male

DRUGS (2)
  1. TEICOPLANIN [Interacting]
     Indication: BACTERIAL INFECTION
     Dosage: 133.3 MG, 3X/DAY
  2. VANCOMYCIN [Suspect]
     Indication: BACTERIAL INFECTION
     Dosage: 1 G, DAILY

REACTIONS (6)
  - NEUTROPENIA [None]
  - PSEUDOMEMBRANOUS COLITIS [None]
  - LEUKOPENIA [None]
  - PYREXIA [None]
  - EOSINOPHILIA [None]
  - DRUG INTERACTION [None]
